FAERS Safety Report 6514394-4 (Version None)
Quarter: 2009Q4

REPORT INFORMATION
  Report Type: 
  Country: None (occurrence: None)
  Receive Date: 20091223
  Receipt Date: 20091216
  Transmission Date: 20100525
  Serious: Yes (Hospitalization, Other)
  Sender: FDA-Public Use
  Company Number: CZ-BIOGENIDEC-2009BI032273

PATIENT
  Age: 43 Year
  Sex: Female
  Weight: 75 kg

DRUGS (11)
  1. NATALIZUMAB [Suspect]
     Indication: MULTIPLE SCLEROSIS
     Route: 042
     Dates: start: 20060405, end: 20090916
  2. TOPIRAMAT SANDOZ [Concomitant]
     Indication: MIGRAINE PROPHYLAXIS
     Route: 048
     Dates: start: 20090406
  3. METAMIZOL [Concomitant]
  4. PITOPHENONE [Concomitant]
  5. THIOCOLCHICOSIDE [Concomitant]
  6. DICLOFENAC SODIUM [Concomitant]
  7. IBUPROFEN [Concomitant]
  8. MONOCLONAL ANTIBODIES [Concomitant]
  9. TOPIRAMATE [Concomitant]
  10. ASPIRIN [Concomitant]
  11. DICLOFENAC [Concomitant]

REACTIONS (1)
  - PROGRESSIVE MULTIFOCAL LEUKOENCEPHALOPATHY [None]
